FAERS Safety Report 9044439 (Version 1)
Quarter: 2013Q1

REPORT INFORMATION
  Report Type: Spontaneous
  Country: US (occurrence: US)
  Receive Date: 20130131
  Receipt Date: 20130131
  Transmission Date: 20140127
  Serious: Yes (Hospitalization)
  Sender: FDA-Public Use
  Company Number: US-AMGEN-USASP2013005443

PATIENT
  Age: 70 Year
  Sex: Male

DRUGS (9)
  1. EPOGEN [Suspect]
     Indication: RENAL FAILURE CHRONIC
     Dosage: 1000 UNIT, QWK
     Route: 058
     Dates: end: 201212
  2. SENSIPAR [Suspect]
     Indication: HYPERPARATHYROIDISM SECONDARY
     Dosage: UNK
  3. COLACE [Concomitant]
     Dosage: UNK
  4. NEPHROCAPS                         /01801401/ [Concomitant]
     Dosage: UNK
  5. HECTOROL [Concomitant]
     Dosage: UNK
  6. LISINOPRIL [Concomitant]
     Dosage: UNK
  7. PERCOCET                           /00446701/ [Concomitant]
     Dosage: UNK
  8. RENVELA [Concomitant]
     Dosage: UNK
  9. AMLODIPINE BESYLATE [Concomitant]
     Dosage: UNK

REACTIONS (2)
  - Pneumonia [Recovered/Resolved]
  - Pruritus [Recovered/Resolved]
